FAERS Safety Report 9998622 (Version 1)
Quarter: 2014Q1

REPORT INFORMATION
  Report Type: Spontaneous
  Country: US (occurrence: US)
  Receive Date: 20140312
  Receipt Date: 20140312
  Transmission Date: 20141002
  Serious: No
  Sender: FDA-Public Use
  Company Number: US-009507513-1403USA004180

PATIENT
  Age: 21 Year
  Sex: Female
  Weight: 58.96 kg

DRUGS (1)
  1. NEXPLANON [Suspect]
     Indication: CONTRACEPTION
     Dosage: UNK
     Route: 059
     Dates: start: 20130215

REACTIONS (6)
  - Unintended pregnancy [Unknown]
  - Haemorrhage [Not Recovered/Not Resolved]
  - Coagulopathy [Not Recovered/Not Resolved]
  - Depression [Not Recovered/Not Resolved]
  - Abdominal pain upper [Not Recovered/Not Resolved]
  - Implant site pain [Not Recovered/Not Resolved]
